FAERS Safety Report 10078229 (Version 1)
Quarter: 2014Q2

REPORT INFORMATION
  Report Type: Report from Study
  Country: FR (occurrence: FR)
  Receive Date: 20140415
  Receipt Date: 20140415
  Transmission Date: 20141212
  Serious: Yes (Other)
  Sender: FDA-Public Use
  Company Number: FR-ROCHE-1378387

PATIENT
  Sex: Female

DRUGS (10)
  1. TOCILIZUMAB [Suspect]
     Indication: RHEUMATOID ARTHRITIS
     Route: 042
     Dates: start: 20110512, end: 20110609
  2. TOCILIZUMAB [Suspect]
     Route: 042
     Dates: start: 20120221, end: 20120712
  3. RITUXIMAB [Suspect]
     Indication: RHEUMATOID ARTHRITIS
     Route: 042
     Dates: start: 20061013
  4. RITUXIMAB [Suspect]
     Route: 042
     Dates: start: 20070613
  5. RITUXIMAB [Suspect]
     Route: 042
     Dates: start: 20100528
  6. METHOTREXATE [Concomitant]
  7. CORTANCYL [Concomitant]
     Route: 065
  8. CORTANCYL [Concomitant]
     Route: 065
  9. SALAZOPYRINE [Concomitant]
     Route: 065
     Dates: start: 200802
  10. ENBREL [Concomitant]
     Route: 065
     Dates: start: 20091012, end: 201004

REACTIONS (4)
  - Cough [Recovered/Resolved]
  - Abortion spontaneous [Unknown]
  - Pancytopenia [Recovered/Resolved]
  - Lupus-like syndrome [Not Recovered/Not Resolved]
